FAERS Safety Report 5706487-6 (Version None)
Quarter: 2008Q2

REPORT INFORMATION
  Report Type: 
  Country: None (occurrence: None)
  Receive Date: 20080414
  Receipt Date: 20080403
  Transmission Date: 20081010
  Serious: Yes (Death, Other)
  Sender: FDA-Public Use
  Company Number: 163-21880-07050481

PATIENT
  Age: 76 Year

DRUGS (1)
  1. REVLIMID [Suspect]
     Indication: CHRONIC LYMPHOCYTIC LEUKAEMIA
     Dosage: 10 MG -25 MG QD X28 DAYS WITH TITRATION UPWARD BY 5 MG Q28 DAYS TO MAX 25 MG/D, ORAL
     Route: 048

REACTIONS (14)
  - ANAEMIA [None]
  - DEEP VEIN THROMBOSIS [None]
  - DIARRHOEA [None]
  - DRUG TOXICITY [None]
  - FATIGUE [None]
  - GASTROENTERITIS CRYPTOSPORIDIAL [None]
  - MUCORMYCOSIS [None]
  - NEUTROPENIA [None]
  - PNEUMOCYSTIS JIROVECI PNEUMONIA [None]
  - PNEUMONIA [None]
  - PYREXIA [None]
  - ROTAVIRUS INFECTION [None]
  - THROMBOCYTOPENIA [None]
  - TUMOUR FLARE [None]
